FAERS Safety Report 13259511 (Version 3)
Quarter: 2017Q3

REPORT INFORMATION
  Report Type: Spontaneous
  Country: US (occurrence: US)
  Receive Date: 20170222
  Receipt Date: 20170823
  Transmission Date: 20171127
  Serious: Yes (Other)
  Sender: FDA-Public Use
  Company Number: US-009507513-1702USA008401

PATIENT
  Sex: Female
  Weight: 46.71 kg

DRUGS (4)
  1. PNV [Concomitant]
     Indication: PREGNANCY
     Dosage: ONE, DAILY
     Route: 048
     Dates: start: 20170210
  2. NIFEDIPINE. [Concomitant]
     Active Substance: NIFEDIPINE
     Indication: UTERINE COMPRESSION SUTURES
     Dosage: 60 MG, BID
     Route: 048
     Dates: start: 20170504
  3. FERROUS GLUCONATE [Concomitant]
     Active Substance: FERROUS GLUCONATE
     Indication: ANAEMIA
     Dosage: 325 MG, DAILY
     Route: 048
     Dates: start: 20170504
  4. NEXPLANON [Suspect]
     Active Substance: ETONOGESTREL
     Indication: CONTRACEPTION
     Dosage: 1 DF, UNK
     Route: 059
     Dates: start: 20161027, end: 20170221

REACTIONS (5)
  - Device deployment issue [Recovered/Resolved]
  - Complication associated with device [Recovered/Resolved]
  - Device difficult to use [Recovering/Resolving]
  - Pregnancy with contraceptive device [Recovered/Resolved]
  - Unintended pregnancy [Recovered/Resolved]

NARRATIVE: CASE EVENT DATE: 20161128
